FAERS Safety Report 7491384-9 (Version None)
Quarter: 2011Q2

REPORT INFORMATION
  Report Type: 
  Country: None (occurrence: None)
  Receive Date: 20110519
  Receipt Date: 20110509
  Transmission Date: 20111010
  Serious: Yes (Other)
  Sender: FDA-Public Use
  Company Number: PHHY2010US35414

PATIENT
  Sex: Female
  Weight: 55.782 kg

DRUGS (5)
  1. EXJADE [Suspect]
     Indication: ACUTE LYMPHOCYTIC LEUKAEMIA (IN REMISSION)
     Dosage: 1250 MG, DAILY
     Route: 048
  2. CALCIUM WITH VITAMIN D [Concomitant]
  3. METOPROLOL TARTRATE [Concomitant]
     Dosage: 50 MG, UNK
  4. MULTI-VITAMINS [Concomitant]
  5. ACYCLOVIR [Concomitant]
     Dosage: 400 MG, UNK

REACTIONS (4)
  - DIARRHOEA [None]
  - BRONCHITIS [None]
  - NAUSEA [None]
  - VOMITING [None]
